FAERS Safety Report 6710653-0 (Version None)
Quarter: 2010Q2

REPORT INFORMATION
  Report Type: 
  Country: None (occurrence: None)
  Receive Date: 20100504
  Receipt Date: 20100504
  Transmission Date: 20101027
  Serious: Yes (Other)
  Sender: FDA-Public Use
  Company Number: None

PATIENT
  Age: 45 Year
  Sex: Female
  Weight: 58.0604 kg

DRUGS (2)
  1. NASAREL [Suspect]
     Indication: HYPERSENSITIVITY
     Dosage: 2 INHALATIONS 2X PER DAY NASAL
     Route: 045
  2. NASAREL [Suspect]
     Indication: NASAL CONGESTION
     Dosage: 2 INHALATIONS 2X PER DAY NASAL
     Route: 045

REACTIONS (2)
  - AGEUSIA [None]
  - ANOSMIA [None]
